FAERS Safety Report 4677203-4 (Version None)
Quarter: 2005Q2

REPORT INFORMATION
  Report Type: 
  Country: None (occurrence: None)
  Receive Date: 20050531
  Receipt Date: 20050519
  Transmission Date: 20051028
  Serious: Yes (Hospitalization, Other)
  Sender: FDA-Public Use
  Company Number: GB-JNJFOC-20050402821

PATIENT
  Sex: Male
  Weight: 87 kg

DRUGS (11)
  1. REMICADE [Suspect]
     Indication: RHEUMATOID ARTHRITIS
     Route: 042
  2. ORUVAIL [Concomitant]
  3. METHOTREXATE [Concomitant]
  4. PREDNISOLONE [Concomitant]
  5. CALCIUM GLUCONATE [Concomitant]
  6. AMLODIPINE [Concomitant]
  7. CO-PROXAMOL [Concomitant]
  8. CO-PROXAMOL [Concomitant]
  9. GLUCOSAMINE [Concomitant]
  10. COD LIVER OIL [Concomitant]
  11. BENDROFLUAZIDE [Concomitant]

REACTIONS (2)
  - DUODENAL ULCER [None]
  - GASTROINTESTINAL HAEMORRHAGE [None]
